FAERS Safety Report 20263987 (Version 1)
Quarter: 2021Q4

REPORT INFORMATION
  Report Type: Spontaneous
  Country: US (occurrence: None)
  Receive Date: 20211230
  Receipt Date: 20211230
  Transmission Date: 20220303
  Serious: No
  Sender: FDA-Public Use
  Company Number: None

PATIENT
  Sex: Female

DRUGS (2)
  1. RESTASIS [Suspect]
     Active Substance: CYCLOSPORINE
     Route: 047
  2. XIIDRA [Suspect]
     Active Substance: LIFITEGRAST
     Route: 047

REACTIONS (2)
  - Eye irritation [None]
  - Instillation site pain [None]
